FAERS Safety Report 20917405 (Version 6)
Quarter: 2022Q3

REPORT INFORMATION
  Report Type: Spontaneous
  Country: CA (occurrence: CA)
  Receive Date: 20220606
  Receipt Date: 20220929
  Transmission Date: 20221027
  Serious: Yes (Hospitalization, Other)
  Sender: FDA-Public Use
  Company Number: CA-CELLTRION INC.-2021CA017377

PATIENT

DRUGS (3)
  1. INFLECTRA [Suspect]
     Active Substance: INFLIXIMAB-DYYB
     Indication: Psoriasis
     Dosage: 700 MG EVERY 8 WEEK
     Route: 042
     Dates: start: 20210811
  2. INFLECTRA [Suspect]
     Active Substance: INFLIXIMAB-DYYB
     Dosage: 700 MG EVERY 8 WEEK
     Route: 042
     Dates: start: 20220204
  3. INFLECTRA [Suspect]
     Active Substance: INFLIXIMAB-DYYB
     Dosage: 700 MG EVERY 8 WEEK
     Route: 042
     Dates: start: 20220526

REACTIONS (18)
  - Infection [Unknown]
  - Asthenia [Unknown]
  - Mobility decreased [Unknown]
  - Diabetes mellitus [Unknown]
  - Limb injury [Unknown]
  - Drug ineffective [Unknown]
  - Malaise [Recovering/Resolving]
  - Dyspnoea [Recovering/Resolving]
  - Fall [Unknown]
  - Sitting disability [Unknown]
  - Gait inability [Not Recovered/Not Resolved]
  - Hyperkeratosis [Unknown]
  - Poor venous access [Unknown]
  - Vein collapse [Unknown]
  - Flashback [Unknown]
  - Pruritus [Not Recovered/Not Resolved]
  - Illness [Recovering/Resolving]
  - Inappropriate schedule of product administration [Unknown]

NARRATIVE: CASE EVENT DATE: 20210101
